FAERS Safety Report 9828382 (Version 4)
Quarter: 2014Q2

REPORT INFORMATION
  Report Type: Report from Study
  Country: CN (occurrence: CN)
  Receive Date: 20140117
  Receipt Date: 20140415
  Transmission Date: 20141212
  Serious: Yes (Death, Life-Threatening)
  Sender: FDA-Public Use
  Company Number: CN-BRISTOL-MYERS SQUIBB COMPANY-20027405

PATIENT
  Age: 63 Year
  Sex: Male

DRUGS (2)
  1. ETOPOSIDE [Suspect]
     Indication: SMALL CELL LUNG CANCER
     Route: 042
     Dates: start: 20131223, end: 20131225
  2. CISPLATIN [Suspect]
     Indication: SMALL CELL LUNG CANCER
     Route: 042
     Dates: start: 20131223, end: 20131223

REACTIONS (3)
  - Electrolyte imbalance [Not Recovered/Not Resolved]
  - Malignant neoplasm progression [Fatal]
  - Bone marrow failure [Not Recovered/Not Resolved]
